FAERS Safety Report 21520419 (Version 2)
Quarter: 2022Q4

REPORT INFORMATION
  Report Type: Report from Study
  Country: EG (occurrence: EG)
  Receive Date: 20221028
  Receipt Date: 20221109
  Transmission Date: 20230113
  Serious: Yes (Other)
  Sender: FDA-Public Use
  Company Number: EG-NOVARTISPH-NVSC2022EG240499

PATIENT
  Age: 53 Year
  Sex: Female

DRUGS (2)
  1. KISQALI [Suspect]
     Active Substance: RIBOCICLIB
     Indication: Breast cancer metastatic
     Dosage: 3 DOSAGE FORM, QD (FOR 21 THEN ONE WEEK OFF)
     Route: 048
     Dates: start: 201909
  2. FEMARA [Concomitant]
     Active Substance: LETROZOLE
     Indication: Breast cancer metastatic
     Dosage: 1 DOSAGE FORM, QD
     Route: 048
     Dates: start: 20190901

REACTIONS (5)
  - Bone pain [Recovering/Resolving]
  - Pain in extremity [Recovering/Resolving]
  - Hypokinesia [Recovering/Resolving]
  - Fatigue [Recovering/Resolving]
  - Hormone level abnormal [Unknown]

NARRATIVE: CASE EVENT DATE: 20220401
